FAERS Safety Report 4457553-7 (Version None)
Quarter: 2004Q3

REPORT INFORMATION
  Report Type: 
  Country: None (occurrence: None)
  Receive Date: 20040922
  Receipt Date: 20040915
  Transmission Date: 20050211
  Serious: Yes (Hospitalization)
  Sender: FDA-Public Use
  Company Number: US-JNJFOC-20040805329

PATIENT
  Age: 30 Year
  Sex: Male
  Weight: 88.4514 kg

DRUGS (1)
  1. MOTRIN (IBUPROFEN) UNSPECIFIED [Suspect]
     Indication: BACK PAIN
     Dosage: 2 TABLETS Q8H
     Dates: start: 19840522, end: 19840524

REACTIONS (1)
  - VENTRICULAR TACHYCARDIA [None]
